FAERS Safety Report 8218683-7 (Version None)
Quarter: 2012Q1

REPORT INFORMATION
  Report Type: 
  Country: None (occurrence: None)
  Receive Date: 20120319
  Receipt Date: 20120308
  Transmission Date: 20120608
  Serious: Yes (Other)
  Sender: FDA-Public Use
  Company Number: PHHY2011CA099085

PATIENT
  Sex: Female

DRUGS (2)
  1. CYCLOBENZAPRINE HCL [Concomitant]
  2. GILENYA [Suspect]
     Indication: RELAPSING-REMITTING MULTIPLE SCLEROSIS
     Dosage: 0.5 MG, QD
     Route: 048
     Dates: start: 20110826

REACTIONS (5)
  - MOUTH ULCERATION [None]
  - BLOOD IRON DECREASED [None]
  - CENTRAL NERVOUS SYSTEM LESION [None]
  - FATIGUE [None]
  - BODY TEMPERATURE INCREASED [None]
